FAERS Safety Report 24633861 (Version 1)
Quarter: 2024Q4

REPORT INFORMATION
  Report Type: Spontaneous
  Country: BD (occurrence: BD)
  Receive Date: 20241118
  Receipt Date: 20241118
  Transmission Date: 20250115
  Serious: Yes (Other)
  Sender: CIPLA
  Company Number: BD-MLMSERVICE-20241030-PI244265-00177-1

PATIENT

DRUGS (5)
  1. ALBUTEROL [Suspect]
     Active Substance: ALBUTEROL
     Indication: Chronic obstructive pulmonary disease
     Dosage: UNK, NEBULIZATION RATIO OF 1
  2. HYDROCORTISONE [Suspect]
     Active Substance: HYDROCORTISONE
     Indication: Chronic obstructive pulmonary disease
     Dosage: UNK, 100 MILLIGRAM
     Route: 065
  3. HYDROCORTISONE [Suspect]
     Active Substance: HYDROCORTISONE
     Dosage: UNK UNK, BID (100 MG STAT DOSE, FOLLOWED BY TWICE DAILY DOSES)
     Route: 065
  4. IPRATROPIUM BROMIDE [Suspect]
     Active Substance: IPRATROPIUM BROMIDE
     Indication: Chronic obstructive pulmonary disease
     Dosage: UNK, NEBULIZATION RATIO OF 1
  5. SODIUM CHLORIDE [Concomitant]
     Active Substance: SODIUM CHLORIDE
     Indication: Chronic obstructive pulmonary disease
     Dosage: UNK, NEBULIZATION RATIO OF 2

REACTIONS (1)
  - Herpes zoster reactivation [Unknown]
